FAERS Safety Report 20598319 (Version 8)
Quarter: 2022Q3

REPORT INFORMATION
  Report Type: Spontaneous
  Country: US (occurrence: US)
  Receive Date: 20220315
  Receipt Date: 20220714
  Transmission Date: 20221027
  Serious: Yes (Other)
  Sender: FDA-Public Use
  Company Number: US-PFIZER INC-202200383634

PATIENT
  Age: 64 Year
  Sex: Female

DRUGS (2)
  1. IBRANCE [Suspect]
     Active Substance: PALBOCICLIB
     Dosage: 125 MG
     Dates: start: 2022
  2. IBRANCE [Suspect]
     Active Substance: PALBOCICLIB
     Dosage: UNK
     Dates: start: 20220328

REACTIONS (11)
  - Neuropathy peripheral [Recovering/Resolving]
  - Diarrhoea [Not Recovered/Not Resolved]
  - Fatigue [Not Recovered/Not Resolved]
  - Decreased appetite [Not Recovered/Not Resolved]
  - White blood cell count decreased [Recovering/Resolving]
  - Weight decreased [Not Recovered/Not Resolved]
  - Constipation [Recovering/Resolving]
  - Asthenia [Recovering/Resolving]
  - Alopecia [Unknown]
  - Ageusia [Unknown]
  - Plicated tongue [Unknown]

NARRATIVE: CASE EVENT DATE: 20220101
